FAERS Safety Report 12627015 (Version 1)
Quarter: 2016Q3

REPORT INFORMATION
  Report Type: Spontaneous
  Country: US (occurrence: US)
  Receive Date: 20160805
  Receipt Date: 20160805
  Transmission Date: 20161109
  Serious: Yes (Other)
  Sender: FDA-Public Use
  Company Number: US-IMPAX LABORATORIES, INC-2016-IPXL-00826

PATIENT
  Age: 47 Year
  Sex: Female

DRUGS (1)
  1. ADRENACLICK [Suspect]
     Active Substance: EPINEPHRINE
     Indication: ANAPHYLACTIC REACTION
     Dosage: UNK
     Route: 042

REACTIONS (3)
  - Thunderclap headache [Recovered/Resolved with Sequelae]
  - Reversible cerebral vasoconstriction syndrome [Unknown]
  - New daily persistent headache [Not Recovered/Not Resolved]
